FAERS Safety Report 6696428-X (Version None)
Quarter: 2010Q2

REPORT INFORMATION
  Report Type: 
  Country: None (occurrence: None)
  Receive Date: 20100421
  Receipt Date: 20100407
  Transmission Date: 20101027
  Serious: Yes (Hospitalization)
  Sender: FDA-Public Use
  Company Number: GB-ACCORD-004685

PATIENT
  Age: 69 Year

DRUGS (5)
  1. SIMVASTATIN [Suspect]
     Indication: DRUG USE FOR UNKNOWN INDICATION
     Dosage: 20.00 MG 1 PER / ORAL1.0 DAYS
     Route: 048
  2. WARFARIN SODIUM [Suspect]
     Indication: ATRIAL FIBRILLATION
     Dosage: 4.00 MG- 1.00 PER / ORAL 1.0 DAY
     Route: 048
  3. ALLOPURINOL [Concomitant]
  4. BISOPROLOL FUMARATE [Concomitant]
  5. PERINDOPRIL ERBUMINE [Concomitant]

REACTIONS (3)
  - DRUG INTERACTION [None]
  - EPISTAXIS [None]
  - INTERNATIONAL NORMALISED RATIO INCREASED [None]
